FAERS Safety Report 11937728 (Version 1)
Quarter: 2016Q1

REPORT INFORMATION
  Report Type: Spontaneous
  Country: US (occurrence: None)
  Receive Date: 20160120
  Receipt Date: 20160120
  Transmission Date: 20160526
  Serious: Yes (Other)
  Sender: FDA-Public Use
  Company Number: None

PATIENT
  Age: 28 Year
  Sex: Male
  Weight: 99.79 kg

DRUGS (1)
  1. ISENTRESS [Suspect]
     Active Substance: RALTEGRAVIR POTASSIUM
     Indication: PROPHYLAXIS
     Dates: start: 20151029, end: 20151129

REACTIONS (2)
  - International normalised ratio increased [None]
  - Drug interaction [None]

NARRATIVE: CASE EVENT DATE: 20151117
